FAERS Safety Report 25617807 (Version 1)
Quarter: 2025Q3

REPORT INFORMATION
  Report Type: Spontaneous
  Country: US (occurrence: None)
  Receive Date: 20250729
  Receipt Date: 20250729
  Transmission Date: 20251021
  Serious: No
  Sender: FDA-CTU
  Company Number: None

PATIENT
  Age: 78 Year
  Sex: Female

DRUGS (2)
  1. AMBRISENTAN [Suspect]
     Active Substance: AMBRISENTAN
     Indication: Pulmonary hypertension
     Dates: start: 20250620, end: 20250720
  2. SILDENAFIL [Suspect]
     Active Substance: SILDENAFIL

REACTIONS (2)
  - Carcinoid tumour [None]
  - Small intestine carcinoma [None]

NARRATIVE: CASE EVENT DATE: 20250728
